FAERS Safety Report 9415678 (Version 1)
Quarter: 2013Q3

REPORT INFORMATION
  Report Type: Spontaneous
  Country: JP (occurrence: JP)
  Receive Date: 20130723
  Receipt Date: 20130723
  Transmission Date: 20140515
  Serious: Yes (Other)
  Sender: FDA-Public Use
  Company Number: PHHY2013JP078159

PATIENT
  Age: 68 Year
  Sex: Male

DRUGS (3)
  1. PREDNISOLONE [Suspect]
     Indication: DRUG REACTION WITH EOSINOPHILIA AND SYSTEMIC SYMPTOMS
     Dosage: 40 MG, QD
     Route: 048
  2. PREDNISOLONE [Suspect]
     Dosage: 15 MG, QD
     Route: 048
  3. PREDNISOLONE [Suspect]
     Dosage: 6 UNK, UNK
     Route: 048

REACTIONS (2)
  - Interstitial lung disease [Unknown]
  - Pneumonia cryptococcal [Unknown]
